FAERS Safety Report 9283088 (Version 1)
Quarter: 2013Q2

REPORT INFORMATION
  Report Type: Spontaneous
  Country: US (occurrence: US)
  Receive Date: 20130510
  Receipt Date: 20130510
  Transmission Date: 20140414
  Serious: No
  Sender: FDA-Public Use
  Company Number: US-GLAXOSMITHKLINE-A0979511A

PATIENT
  Age: 70 Year
  Sex: Female
  Weight: 57.3 kg

DRUGS (2)
  1. TYKERB [Suspect]
     Indication: BREAST CANCER
     Dosage: 250MG THREE TIMES PER DAY
     Route: 048
     Dates: start: 201203, end: 20120514
  2. HERCEPTIN [Concomitant]

REACTIONS (2)
  - Rash [Recovered/Resolved]
  - Skin exfoliation [Unknown]
